FAERS Safety Report 26082499 (Version 2)
Quarter: 2025Q4

REPORT INFORMATION
  Report Type: Report from Study
  Country: KR (occurrence: KR)
  Receive Date: 20251124
  Receipt Date: 20251214
  Transmission Date: 20260117
  Serious: Yes (Death)
  Sender: AMGEN
  Company Number: KR-AMGEN-KORNI2025230544

PATIENT
  Age: 60 Year
  Sex: Male

DRUGS (1)
  1. TARLATAMAB [Suspect]
     Active Substance: TARLATAMAB
     Indication: Small cell lung cancer
     Dosage: UNK
     Route: 065

REACTIONS (2)
  - Pneumonia [Fatal]
  - Disease progression [Unknown]
